FAERS Safety Report 18041829 (Version 1)
Quarter: 2020Q3

REPORT INFORMATION
  Report Type: Report from Study
  Country: IT (occurrence: IT)
  Receive Date: 20200720
  Receipt Date: 20200720
  Transmission Date: 20201103
  Serious: Yes (Hospitalization)
  Sender: FDA-Public Use
  Company Number: IT-TEVA-2020-IT-1801176

PATIENT
  Age: 73 Year
  Sex: Male

DRUGS (1)
  1. AMOXICILLINA [Suspect]
     Active Substance: AMOXICILLIN
     Dates: start: 20200123, end: 20200123

REACTIONS (4)
  - Urticaria [Recovered/Resolved]
  - Erythema [Recovered/Resolved]
  - Dyspnoea [Recovered/Resolved]
  - Periorbital oedema [Recovered/Resolved]

NARRATIVE: CASE EVENT DATE: 20200123
